FAERS Safety Report 16067406 (Version 4)
Quarter: 2019Q2

REPORT INFORMATION
  Report Type: Spontaneous
  Country: US (occurrence: US)
  Receive Date: 20190313
  Receipt Date: 20190503
  Transmission Date: 20190711
  Serious: Yes (Other)
  Sender: FDA-Public Use
  Company Number: US-GLAXOSMITHKLINE-US2019GSK043675

PATIENT
  Sex: Female

DRUGS (3)
  1. LANSOPRAZOLE. [Suspect]
     Active Substance: LANSOPRAZOLE
     Indication: PRODUCT USED FOR UNKNOWN INDICATION
     Dosage: 30 MG, QD
     Route: 048
  2. PREVACID [Suspect]
     Active Substance: LANSOPRAZOLE
     Indication: PRODUCT USED FOR UNKNOWN INDICATION
     Dosage: UNK
     Route: 065
  3. PREVACID [Suspect]
     Active Substance: LANSOPRAZOLE
     Indication: PRODUCT USED FOR UNKNOWN INDICATION
     Dosage: 30 MG, QD
     Route: 048

REACTIONS (15)
  - Renal injury [Unknown]
  - Chronic kidney disease [Unknown]
  - Calculus urinary [Unknown]
  - Nephrolithiasis [Unknown]
  - Ureterolithiasis [Unknown]
  - Renal pain [Unknown]
  - Hydronephrosis [Unknown]
  - Nephropathy [Unknown]
  - Haematuria [Unknown]
  - Urinary retention [Unknown]
  - Kidney enlargement [Unknown]
  - Dysuria [Unknown]
  - Acute kidney injury [Unknown]
  - Pyelonephritis [Unknown]
  - Renal colic [Unknown]
